FAERS Safety Report 9247337 (Version 1)
Quarter: 2013Q2

REPORT INFORMATION
  Report Type: Spontaneous
  Country: CA (occurrence: CA)
  Receive Date: 20130423
  Receipt Date: 20130423
  Transmission Date: 20140414
  Serious: Yes (Other)
  Sender: FDA-Public Use
  Company Number: CA-JNJFOC-20130411934

PATIENT
  Age: 53 Year
  Sex: Female

DRUGS (1)
  1. LEVAQUIN [Suspect]
     Indication: SINUSITIS
     Route: 065
     Dates: start: 20130410, end: 20130412

REACTIONS (3)
  - Tendon disorder [Unknown]
  - Arthropathy [Unknown]
  - Gait disturbance [Unknown]
